FAERS Safety Report 10904646 (Version 1)
Quarter: 2015Q1

REPORT INFORMATION
  Report Type: Spontaneous
  Country: US (occurrence: US)
  Receive Date: 20150311
  Receipt Date: 20150311
  Transmission Date: 20150721
  Serious: Yes (Other)
  Sender: FDA-Public Use
  Company Number: US-MYLANLABS-2015M1006382

PATIENT

DRUGS (7)
  1. MIDAZOLAM [Concomitant]
     Active Substance: MIDAZOLAM\MIDAZOLAM HYDROCHLORIDE
     Indication: PREOPERATIVE CARE
     Dosage: UNK
     Dates: start: 20150223, end: 20150223
  2. ULTIVA [Suspect]
     Active Substance: REMIFENTANIL HYDROCHLORIDE
     Dosage: 0.1 ?G/KG, QMINUTE
     Route: 042
     Dates: start: 20150223, end: 20150223
  3. UNASYN [Concomitant]
     Active Substance: AMPICILLIN SODIUM\SULBACTAM SODIUM
     Indication: PREOPERATIVE CARE
     Dosage: UNK
     Dates: start: 20150223, end: 20150223
  4. DEXAMETHASONE. [Concomitant]
     Active Substance: DEXAMETHASONE
     Indication: POSTOPERATIVE CARE
     Dosage: UNK
     Dates: start: 20150223, end: 20150223
  5. ULTIVA [Suspect]
     Active Substance: REMIFENTANIL HYDROCHLORIDE
     Indication: GENERAL ANAESTHESIA
     Dosage: 0.05 ?G/KG, QMINUTE
     Route: 042
     Dates: start: 20150223, end: 20150223
  6. PROPOFOL. [Concomitant]
     Active Substance: PROPOFOL
     Indication: SURGERY
     Dosage: UNK
     Dates: start: 20150223, end: 20150223
  7. MORPHINE [Concomitant]
     Active Substance: MORPHINE
     Indication: POSTOPERATIVE CARE
     Dosage: UNK
     Dates: start: 20150223, end: 20150223

REACTIONS (1)
  - Drug effect decreased [Recovered/Resolved]

NARRATIVE: CASE EVENT DATE: 20150223
